FAERS Safety Report 25588318 (Version 3)
Quarter: 2025Q3

REPORT INFORMATION
  Report Type: Spontaneous
  Country: JP (occurrence: JP)
  Receive Date: 20250722
  Receipt Date: 20250825
  Transmission Date: 20251020
  Serious: Yes (Hospitalization)
  Sender: ASTELLAS
  Company Number: JP-ASTELLAS-2025-AER-039201

PATIENT
  Age: 78 Year
  Sex: Female

DRUGS (2)
  1. VYLOY [Suspect]
     Active Substance: ZOLBETUXIMAB-CLZB
     Indication: Gastric cancer
     Route: 042
     Dates: start: 20250625, end: 20250625
  2. CAPECITABINE [Suspect]
     Active Substance: CAPECITABINE
     Indication: Gastric cancer
     Route: 048
     Dates: start: 20250625, end: 20250630

REACTIONS (4)
  - Decreased appetite [Recovered/Resolved]
  - Malaise [Recovered/Resolved]
  - Blood albumin decreased [Unknown]
  - Taste disorder [Recovering/Resolving]

NARRATIVE: CASE EVENT DATE: 20250630
